FAERS Safety Report 8834795 (Version 2)
Quarter: 2013Q1

REPORT INFORMATION
  Report Type: Spontaneous
  Country: DK (occurrence: None)
  Receive Date: 20121009
  Receipt Date: 20121214
  Transmission Date: 20140127
  Serious: Yes (Life-Threatening, Hospitalization, Other)
  Sender: FDA-Public Use
  Company Number: 2012MA011936

PATIENT
  Age: 66 Year
  Sex: Male

DRUGS (6)
  1. METFORMIN HYDROCHLORIDE [Suspect]
     Indication: TYPE 2 DIABETES MELLITUS
     Route: 048
     Dates: start: 19990722, end: 20110910
  2. LISINOPRIL (LISINOPRIL) [Suspect]
     Indication: HYPERTENSION
     Route: 048
     Dates: start: 20070503, end: 20070503
  3. ACETYLSALICYLIC ACID [Concomitant]
  4. BENDROFLUMETHIAZIDE [Concomitant]
  5. SIMVASTATIN [Concomitant]
  6. OMEPRAZOLE [Concomitant]

REACTIONS (9)
  - Fall [None]
  - Hypotension [None]
  - Renal impairment [None]
  - General physical health deterioration [None]
  - Sepsis [None]
  - Lactic acidosis [None]
  - Diarrhoea [None]
  - Syncope [None]
  - Organ failure [None]
